FAERS Safety Report 11179882 (Version 1)
Quarter: 2015Q2

REPORT INFORMATION
  Report Type: Report from Study
  Country: JP (occurrence: JP)
  Receive Date: 20150611
  Receipt Date: 20150611
  Transmission Date: 20150821
  Serious: Yes (Disabling)
  Sender: FDA-Public Use
  Company Number: JP-009507513-1506JPN003649

PATIENT
  Sex: Female
  Weight: 1.05 kg

DRUGS (13)
  1. BRICANYL [Concomitant]
     Active Substance: TERBUTALINE SULFATE
     Dosage: 4 MG, QD (FORMULATION: POR) (DIVIDED DOSE FREQUENCY UNKNOWN)
     Route: 064
     Dates: start: 20100819, end: 20100831
  2. DACTIL [Concomitant]
     Dosage: 150 MG, QD (DIVIDED DOSE FREQUENCY UNKNOWN)
     Route: 064
     Dates: start: 20100817, end: 20100817
  3. VITAMIN E [Concomitant]
     Active Substance: .ALPHA.-TOCOPHEROL
     Dosage: 150 MG, QD (DIVIDED DOSE FREQUENCY UNKNOWN)
     Route: 064
     Dates: start: 20100817, end: 20100817
  4. MENOTROPINS [Concomitant]
     Active Substance: MENOTROPINS
     Dosage: 5000(UNDER 1000UNIT), QD
     Route: 064
     Dates: start: 20100626, end: 20100626
  5. GANIRELIX ACETATE. [Suspect]
     Active Substance: GANIRELIX ACETATE
     Dosage: 0.25 MG, QD
     Route: 064
     Dates: start: 20100623, end: 20100625
  6. BRICANYL [Concomitant]
     Active Substance: TERBUTALINE SULFATE
     Dosage: 6 MG, QD (FORMULATION POR) (DIVIDED DOSE FREQUENCY UNKNOWN))
     Route: 064
     Dates: start: 20100817, end: 20100819
  7. LUTORAL (CHLORMADINONE ACETATE) [Concomitant]
     Active Substance: CHLORMADINONE ACETATE\MESTRANOL
     Dosage: 6 MG, QD (DIVIDED DOSE FREQUENCY UNKNOWN)
     Route: 064
     Dates: start: 20100817, end: 20100817
  8. ESTRANA [Concomitant]
     Dosage: UNK
     Route: 064
     Dates: start: 20100817
  9. PROGESTON [Concomitant]
     Active Substance: MEDROXYPROGESTERONE ACETATE
     Dosage: 50 MG, QD (DIVIDED DOSE FREQUENCY UNKNOWN)
     Route: 064
     Dates: start: 20100817, end: 20100817
  10. PROGE DEPOT [Concomitant]
     Dosage: 125 MG, QD (DIVIDED DOSE FREQUENCY UNKNOWN)
     Route: 064
     Dates: start: 20100819, end: 20100830
  11. MENOTROPINS [Concomitant]
     Active Substance: MENOTROPINS
     Dosage: 150 UNDER 1000 UNIT, QD
     Route: 064
     Dates: start: 20100623, end: 20100624
  12. MENOTROPINS [Concomitant]
     Active Substance: MENOTROPINS
     Dosage: 225 (UNDER 1000UNIT), QD
     Route: 064
     Dates: start: 20100625, end: 20100625
  13. PROGESTERONE. [Concomitant]
     Active Substance: PROGESTERONE
     Dosage: 400 MG, QD (DIVIDED DOSE FREQUENCY UNKNOWN) (FORMULATION: EXT)
     Route: 064
     Dates: start: 20100827, end: 20100827

REACTIONS (2)
  - Foetal exposure during pregnancy [Recovered/Resolved]
  - Cleft lip and palate [Unknown]

NARRATIVE: CASE EVENT DATE: 20110217
